FAERS Safety Report 9748286 (Version 1)
Quarter: 2013Q4

REPORT INFORMATION
  Report Type: Spontaneous
  Country: US (occurrence: US)
  Receive Date: 20131212
  Receipt Date: 20131212
  Transmission Date: 20140711
  Serious: Yes (Other)
  Sender: FDA-Public Use
  Company Number: US-JNJFOC-20131201401

PATIENT
  Age: 60 Year
  Sex: Male

DRUGS (8)
  1. ABIRATERONE ACETATE [Suspect]
     Indication: PROSTATE CANCER METASTATIC
     Route: 048
     Dates: start: 2012
  2. PREDNISONE [Suspect]
     Indication: PROSTATE CANCER METASTATIC
     Route: 065
  3. LEUPROLIDE ACETATE [Suspect]
     Indication: PROSTATE CANCER METASTATIC
     Route: 065
  4. METHOTREXATE [Suspect]
     Indication: POLYARTHRITIS
     Route: 065
  5. METHOTREXATE [Suspect]
     Indication: PALMAR FASCIITIS
     Route: 065
  6. ADALIMUMAB [Suspect]
     Indication: POLYARTHRITIS
     Route: 065
  7. ADALIMUMAB [Suspect]
     Indication: PALMAR FASCIITIS
     Route: 065
  8. FOLIC ACID [Concomitant]
     Indication: PRODUCT USED FOR UNKNOWN INDICATION
     Route: 065

REACTIONS (2)
  - Prostate cancer metastatic [Recovering/Resolving]
  - Palmar fasciitis [Unknown]
